FAERS Safety Report 5983345-3 (Version None)
Quarter: 2008Q4

REPORT INFORMATION
  Report Type: 
  Country: None (occurrence: None)
  Receive Date: 20081208
  Receipt Date: 20081106
  Transmission Date: 20090506
  Serious: No
  Sender: FDA-Public Use
  Company Number: US-BAYER-200814310BCC

PATIENT
  Age: 70 Year
  Sex: Female
  Weight: 84 kg

DRUGS (2)
  1. ALEVE (CAPLET) [Suspect]
     Indication: ANALGESIA
     Dates: start: 20040101, end: 20081105
  2. DIABETES MEDICATION [Concomitant]

REACTIONS (1)
  - BLOOD GLUCOSE INCREASED [None]
